FAERS Safety Report 4532426-X (Version None)
Quarter: 2004Q4

REPORT INFORMATION
  Report Type: 
  Country: None (occurrence: None)
  Receive Date: 20041217
  Receipt Date: 20041208
  Transmission Date: 20050328
  Serious: Yes (Hospitalization)
  Sender: FDA-Public Use
  Company Number: 2004-12-0492

PATIENT
  Age: 51 Year
  Sex: Male

DRUGS (3)
  1. REBETOL [Suspect]
     Indication: HEPATITIS C
     Dosage: 100 MG QD ORAL
     Route: 048
     Dates: start: 20041014, end: 20041112
  2. ACTIMMUNE (INTERFERON GAMMA-1B) INJECTABLE SOLUTION [Suspect]
     Indication: HEPATITIS C
     Dosage: 50 UG TIW
     Dates: start: 20041014, end: 20041112
  3. INFERAX (INTERFERON ALFACON-1) INJECTABLE SOLUTION [Suspect]
     Indication: HEPATITIS C
     Dosage: 17 UG  QD
     Dates: start: 20041014, end: 20041112

REACTIONS (3)
  - BONE INFECTION [None]
  - LYMPHOMA [None]
  - MYOSITIS [None]
